FAERS Safety Report 11376935 (Version 2)
Quarter: 2015Q4

REPORT INFORMATION
  Report Type: Report from Study
  Country: CA (occurrence: CA)
  Receive Date: 20150813
  Receipt Date: 20151217
  Transmission Date: 20160304
  Serious: Yes (Death, Hospitalization)
  Sender: FDA-Public Use
  Company Number: CA-ACTELION-A-US2015-122224

PATIENT
  Age: 68 Year
  Sex: Female
  Weight: 30.84 kg

DRUGS (15)
  1. VELETRI [Suspect]
     Active Substance: EPOPROSTENOL
     Indication: PULMONARY ARTERIAL HYPERTENSION
     Dosage: UNK
     Route: 042
     Dates: start: 20150126
  2. OXYBUTYNIN [Concomitant]
     Active Substance: OXYBUTYNIN
  3. ASA [Concomitant]
     Active Substance: ASPIRIN
  4. VITAMIN D [Concomitant]
     Active Substance: CHOLECALCIFEROL
  5. TYLENOL [Concomitant]
     Active Substance: ACETAMINOPHEN
  6. SPIRONOLACTONE. [Concomitant]
     Active Substance: SPIRONOLACTONE
  7. ANASTROZOLE. [Concomitant]
     Active Substance: ANASTROZOLE
  8. PREDNISONE. [Concomitant]
     Active Substance: PREDNISONE
  9. METOLAZONE. [Concomitant]
     Active Substance: METOLAZONE
  10. NEXIUM [Concomitant]
     Active Substance: ESOMEPRAZOLE MAGNESIUM
  11. PROLIA [Concomitant]
     Active Substance: DENOSUMAB
  12. TRACLEER [Suspect]
     Active Substance: BOSENTAN
     Indication: PULMONARY ARTERIAL HYPERTENSION
     Dosage: 125 MG, BID
     Route: 048
     Dates: end: 20150801
  13. FUROSEMIDE. [Concomitant]
     Active Substance: FUROSEMIDE
  14. ADCIRCA [Concomitant]
     Active Substance: TADALAFIL
  15. OXYGEN. [Concomitant]
     Active Substance: OXYGEN

REACTIONS (2)
  - Pulmonary hypertension [Fatal]
  - Disease progression [Fatal]
